FAERS Safety Report 7298272-1 (Version None)
Quarter: 2011Q1

REPORT INFORMATION
  Report Type: 
  Country: None (occurrence: None)
  Receive Date: 20110217
  Receipt Date: 20100121
  Transmission Date: 20110831
  Serious: No
  Sender: FDA-Public Use
  Company Number: US-PFIZER INC-2010009116

PATIENT
  Sex: Female

DRUGS (1)
  1. XALATAN [Suspect]
     Dosage: 1.5 UG, 1X/DAY
     Route: 031
     Dates: start: 20070301, end: 20100120

REACTIONS (1)
  - INSTILLATION SITE PAIN [None]
